FAERS Safety Report 13364574 (Version 1)
Quarter: 2017Q1

REPORT INFORMATION
  Report Type: Spontaneous
  Country: US (occurrence: US)
  Receive Date: 20170323
  Receipt Date: 20170323
  Transmission Date: 20170429
  Serious: No
  Sender: FDA-Public Use
  Company Number: US-ROCHE-1386232

PATIENT
  Sex: Female

DRUGS (10)
  1. NASONEX [Concomitant]
     Active Substance: MOMETASONE FUROATE
     Dosage: 2 SPRAYS EACH NOSTRIL TWICE A DAY
     Route: 045
  2. VENTOLIN [Concomitant]
     Active Substance: ALBUTEROL SULFATE
     Dosage: AS NEEDED
     Route: 065
  3. DULERA [Concomitant]
     Active Substance: FORMOTEROL FUMARATE DIHYDRATE\MOMETASONE FUROATE
     Dosage: 2 PUFFS TWICE A DAY
     Route: 065
  4. XOLAIR [Suspect]
     Active Substance: OMALIZUMAB
     Indication: ASTHMA
     Route: 058
     Dates: start: 2012
  5. DALIRESP [Concomitant]
     Active Substance: ROFLUMILAST
     Route: 048
  6. ZETONNA [Concomitant]
     Active Substance: CICLESONIDE
     Route: 048
  7. AMMONIUM LACTATE. [Concomitant]
     Active Substance: AMMONIUM LACTATE
     Route: 065
  8. SPIRIVA [Concomitant]
     Active Substance: TIOTROPIUM BROMIDE MONOHYDRATE
     Route: 065
  9. EPIPEN [Concomitant]
     Active Substance: EPINEPHRINE
     Dosage: AS NEEDED
     Route: 065
  10. TRAZODONE [Concomitant]
     Active Substance: TRAZODONE HYDROCHLORIDE
     Route: 048

REACTIONS (3)
  - Odynophagia [Recovered/Resolved]
  - Aphonia [Recovered/Resolved]
  - Oropharyngeal pain [Recovered/Resolved]
